FAERS Safety Report 7125173-1 (Version None)
Quarter: 2010Q4

REPORT INFORMATION
  Report Type: 
  Country: None (occurrence: None)
  Receive Date: 20101129
  Receipt Date: 20101116
  Transmission Date: 20110411
  Serious: Yes (Other)
  Sender: FDA-Public Use
  Company Number: PHHY2010CA77867

PATIENT
  Sex: Male

DRUGS (2)
  1. DIOVAN [Suspect]
     Dosage: 160 MG, UNK
     Dates: start: 20070101
  2. METOPROLOL [Suspect]
     Dosage: 25 MG, UNK
     Dates: start: 20070101

REACTIONS (5)
  - CHEILITIS [None]
  - LIP DISORDER [None]
  - LIP PAIN [None]
  - LIP SWELLING [None]
  - NODULE [None]
